FAERS Safety Report 5530340-4 (Version None)
Quarter: 2007Q4

REPORT INFORMATION
  Report Type: 
  Country: None (occurrence: None)
  Receive Date: 20071127
  Receipt Date: 20071127
  Transmission Date: 20080405
  Serious: Yes (Death, Other)
  Sender: FDA-Public Use
  Company Number: None

PATIENT
  Age: 66 Year
  Sex: Male
  Weight: 117.9352 kg

DRUGS (1)
  1. CIPRO IV [Suspect]
     Indication: STAPHYLOCOCCAL INFECTION
     Dosage: A DAY PO
     Route: 048
     Dates: start: 20070304, end: 20070312

REACTIONS (1)
  - COMPLETED SUICIDE [None]
